FAERS Safety Report 9852329 (Version 1)
Quarter: 2014Q1

REPORT INFORMATION
  Report Type: Spontaneous
  Country: US (occurrence: None)
  Receive Date: 20140127
  Receipt Date: 20140127
  Transmission Date: 20141002
  Serious: Yes (Other)
  Sender: FDA-Public Use
  Company Number: AUR-APL-2014-00465

PATIENT
  Sex: Male

DRUGS (1)
  1. METOPROLOL (METOPROLOL) [Suspect]
     Indication: PRODUCT USED FOR UNKNOWN INDICATION

REACTIONS (17)
  - Vision blurred [None]
  - Abnormal dreams [None]
  - Peripheral coldness [None]
  - Chest pain [None]
  - Dizziness [None]
  - Insomnia [None]
  - Muscular weakness [None]
  - Erectile dysfunction [None]
  - Genital disorder male [None]
  - Weight increased [None]
  - Local swelling [None]
  - Local swelling [None]
  - Depression [None]
  - Hypoaesthesia [None]
  - Hypoaesthesia [None]
  - Blood pressure decreased [None]
  - Activities of daily living impaired [None]
